FAERS Safety Report 24679761 (Version 1)
Quarter: 2024Q4

REPORT INFORMATION
  Report Type: Spontaneous
  Country: GB (occurrence: GB)
  Receive Date: 20241129
  Receipt Date: 20241129
  Transmission Date: 20250115
  Serious: Yes (Hospitalization, Other)
  Sender: JOHNSON AND JOHNSON
  Company Number: None

PATIENT
  Age: 60 Year
  Sex: Male
  Weight: 106 kg

DRUGS (1)
  1. INVOKANA [Suspect]
     Active Substance: CANAGLIFLOZIN
     Indication: Type 2 diabetes mellitus
     Dosage: 300MG ONCE A DAY
     Route: 048
     Dates: end: 20241120

REACTIONS (1)
  - Localised infection [Recovering/Resolving]
